FAERS Safety Report 18119843 (Version 1)
Quarter: 2020Q3

REPORT INFORMATION
  Report Type: Spontaneous
  Country: US (occurrence: US)
  Receive Date: 20200806
  Receipt Date: 20200806
  Transmission Date: 20201103
  Serious: Yes (Hospitalization, Other)
  Sender: FDA-Public Use
  Company Number: US-AUROBINDO-AUR-APL-2020-037539

PATIENT
  Age: 25 Year
  Sex: Female

DRUGS (4)
  1. LAMOTRIGINE. [Suspect]
     Active Substance: LAMOTRIGINE
     Indication: PRODUCT USED FOR UNKNOWN INDICATION
     Dosage: UNK
     Route: 065
  2. OXYCODONE [Suspect]
     Active Substance: OXYCODONE
     Indication: PRODUCT USED FOR UNKNOWN INDICATION
     Dosage: UNK
     Route: 065
  3. ZOLPIDEM [Suspect]
     Active Substance: ZOLPIDEM TARTRATE
     Indication: PRODUCT USED FOR UNKNOWN INDICATION
     Dosage: UNK
     Route: 065
  4. BUSPIRONE HYDROCHLORIDE. [Suspect]
     Active Substance: BUSPIRONE HYDROCHLORIDE
     Indication: PRODUCT USED FOR UNKNOWN INDICATION
     Dosage: UNK
     Route: 065

REACTIONS (19)
  - Rhabdomyolysis [Unknown]
  - Disseminated intravascular coagulation [Unknown]
  - Confusional state [Unknown]
  - Serotonin syndrome [Unknown]
  - Drug abuse [Unknown]
  - Acute respiratory failure [Unknown]
  - Overdose [Unknown]
  - Hypertension [Unknown]
  - Acute hepatic failure [Unknown]
  - Hyperthermia [Unknown]
  - Encephalopathy [Unknown]
  - Multiple organ dysfunction syndrome [Unknown]
  - Stress cardiomyopathy [Unknown]
  - Tachycardia [Unknown]
  - Clonus [Unknown]
  - Muscle rigidity [Unknown]
  - Hypotension [Unknown]
  - Cardiogenic shock [Unknown]
  - Acute kidney injury [Unknown]
